FAERS Safety Report 5479057-5 (Version None)
Quarter: 2007Q4

REPORT INFORMATION
  Report Type: 
  Country: None (occurrence: None)
  Receive Date: 20071006
  Receipt Date: 20070926
  Transmission Date: 20080405
  Serious: Yes (Other)
  Sender: FDA-Public Use
  Company Number: IE-PFIZER INC-2007081270

PATIENT
  Age: 71 Year
  Sex: Female

DRUGS (8)
  1. CARDURA [Suspect]
     Indication: HYPERTENSION
     Route: 048
  2. CARDURA [Suspect]
  3. PERINDOPRIL ERBUMINE [Suspect]
  4. LOSEC [Suspect]
  5. GLUCOPHAGE [Concomitant]
  6. LIPITOR [Concomitant]
  7. ACETYLSALICYLIC ACID [Concomitant]
  8. ELTROXIN [Concomitant]

REACTIONS (1)
  - ANGIOEDEMA [None]
